FAERS Safety Report 6892221-3 (Version None)
Quarter: 2010Q3

REPORT INFORMATION
  Report Type: 
  Country: None (occurrence: None)
  Receive Date: 20100731
  Receipt Date: 20080423
  Transmission Date: 20110219
  Serious: Yes (Other)
  Sender: FDA-Public Use
  Company Number: US-PFIZER INC-2008021304

PATIENT
  Sex: Female

DRUGS (13)
  1. CAMPTOSAR [Suspect]
     Indication: METASTATIC GASTRIC CANCER
     Dates: start: 20071031
  2. FLUOROURACIL [Suspect]
     Indication: METASTATIC GASTRIC CANCER
  3. CALCIUM FOLINATE [Suspect]
     Indication: METASTATIC GASTRIC CANCER
  4. ATROPINE [Concomitant]
     Route: 042
  5. DEXAMETHASONE [Concomitant]
  6. LOPERAMIDE HYDROCHLORIDE [Concomitant]
     Route: 048
  7. PANTOPRAZOLE [Concomitant]
  8. METOPROLOL SUCCINATE [Concomitant]
  9. LOVAZA [Concomitant]
  10. MULTI-VITAMINS [Concomitant]
  11. COLACE [Concomitant]
  12. TAMSULOSIN HYDROCHLORIDE [Concomitant]
  13. FINASTERIDE [Concomitant]

REACTIONS (4)
  - BLOOD ALKALINE PHOSPHATASE INCREASED [None]
  - BLOOD BILIRUBIN INCREASED [None]
  - BLOOD GLUCOSE INCREASED [None]
  - TRANSAMINASES INCREASED [None]
